FAERS Safety Report 7735693-4 (Version None)
Quarter: 2011Q3

REPORT INFORMATION
  Report Type: 
  Country: None (occurrence: None)
  Receive Date: 20110907
  Receipt Date: 20110830
  Transmission Date: 20111222
  Serious: Yes (Death, Hospitalization)
  Sender: FDA-Public Use
  Company Number: JP-AMGEN-JPNCT2011009546

PATIENT
  Age: 78 Year
  Sex: Female
  Weight: 45 kg

DRUGS (12)
  1. LANSOPRAZOLE [Concomitant]
     Route: 048
  2. CORTICOSTEROIDS [Concomitant]
     Indication: PROPHYLAXIS
     Route: 065
  3. LAC B [Concomitant]
     Route: 048
  4. PANITUMUMAB [Suspect]
     Indication: COLORECTAL CANCER
     Dosage: 6 MG/KG, Q2WK
     Route: 041
     Dates: start: 20101126, end: 20110111
  5. MAGNESIUM SULFATE [Concomitant]
     Route: 048
  6. LASIX [Concomitant]
     Route: 048
  7. OXYCONTIN [Concomitant]
     Route: 048
  8. FERRUM [Concomitant]
     Route: 048
  9. ETODOLAC [Concomitant]
     Route: 048
  10. PANITUMUMAB [Suspect]
     Dosage: 6 MG/KG, Q2WK
     Route: 041
     Dates: start: 20110208, end: 20110222
  11. PURSENNID [Concomitant]
     Route: 048
  12. METHAPHYLLIN [Concomitant]
     Route: 048

REACTIONS (2)
  - CYSTITIS HAEMORRHAGIC [None]
  - COLORECTAL CANCER [None]
